FAERS Safety Report 6705300-8 (Version None)
Quarter: 2010Q2

REPORT INFORMATION
  Report Type: 
  Country: None (occurrence: None)
  Receive Date: 20100430
  Receipt Date: 20100420
  Transmission Date: 20101027
  Serious: Yes (Other)
  Sender: FDA-Public Use
  Company Number: GB-ROCHE-698497

PATIENT
  Age: 40 Year
  Sex: Male
  Weight: 75 kg

DRUGS (7)
  1. TAMIFLU [Suspect]
     Dosage: FORM: UNSPECIFIED, DRUG WITHDRAWN.
     Route: 048
     Dates: start: 20090802, end: 20090812
  2. ATORVASTATIN [Concomitant]
     Route: 048
     Dates: end: 20091101
  3. CETIRIZINE HCL [Concomitant]
     Route: 048
  4. HUMALOG [Concomitant]
     Route: 058
  5. LANTUS [Concomitant]
     Route: 058
  6. QVAR 40 [Concomitant]
     Indication: ASTHMA
     Route: 055
  7. SERTRALINE HCL [Concomitant]
     Indication: DEPRESSION
     Route: 048

REACTIONS (3)
  - ASTHENIA [None]
  - HYPOAESTHESIA [None]
  - MYELITIS TRANSVERSE [None]
